FAERS Safety Report 25613724 (Version 2)
Quarter: 2025Q3

REPORT INFORMATION
  Report Type: Spontaneous
  Country: CA (occurrence: CA)
  Receive Date: 20250728
  Receipt Date: 20250924
  Transmission Date: 20251021
  Serious: Yes (Other)
  Sender: PFIZER
  Company Number: CA-PFIZER INC-202500150488

PATIENT
  Age: 74 Year
  Sex: Female

DRUGS (5)
  1. RUXIENCE [Suspect]
     Active Substance: RITUXIMAB-PVVR
     Indication: Rheumatoid arthritis
     Route: 042
     Dates: start: 20240626, end: 20240710
  2. RUXIENCE [Suspect]
     Active Substance: RITUXIMAB-PVVR
     Indication: Connective tissue disorder
     Route: 042
     Dates: start: 20250306
  3. RUXIENCE [Suspect]
     Active Substance: RITUXIMAB-PVVR
     Indication: Connective tissue disease-associated interstitial lung disease
     Route: 042
     Dates: start: 20250321
  4. PREDNISONE [Concomitant]
     Active Substance: PREDNISONE
  5. HYDROXYCHLOROQUINE [Concomitant]
     Active Substance: HYDROXYCHLOROQUINE
     Dates: end: 20250722

REACTIONS (2)
  - Macular degeneration [Unknown]
  - Cataract [Unknown]
